FAERS Safety Report 11131170 (Version 1)
Quarter: 2015Q2

REPORT INFORMATION
  Report Type: Spontaneous
  Country: US (occurrence: None)
  Receive Date: 20150520
  Receipt Date: 20150520
  Transmission Date: 20150821
  Serious: Yes (Other)
  Sender: FDA-Public Use
  Company Number: US-H14001-15-00773

PATIENT
  Age: 71 Year
  Sex: Female

DRUGS (6)
  1. ASPRIN [Concomitant]
     Active Substance: ASPIRIN
  2. METOPROLOL TARTRATE (METOPROLOL TARTRATE) (UNKNOWN) (METOPROLOL TARTRATE) [Concomitant]
  3. SIMVASTATIN (SIMVASTATIN) (UNKNOWN) (SIMVASTATIN) [Concomitant]
  4. NITROGLYCERIN (GLYCERYL TRINITRATE) (UNKNOWN) (GLYCERYL TRINITRATE) [Concomitant]
  5. HYDROCHLOROTHIAZIDE (HYDROCHLOROTHIAZIDE) (UNKNOWN) (HYDROCHLOROTHIAZIDE) [Suspect]
     Active Substance: HYDROCHLOROTHIAZIDE
     Indication: HYPERTENSION
  6. QUINAPRIL (QUINAPRIL) (UNKNOWN) (QUINAPRIL) [Concomitant]

REACTIONS (1)
  - Myocarditis [None]
